FAERS Safety Report 13238043 (Version 2)
Quarter: 2017Q1

REPORT INFORMATION
  Report Type: Report from Study
  Country: None (occurrence: IL)
  Receive Date: 20170216
  Receipt Date: 20170307
  Transmission Date: 20170428
  Serious: Yes (Hospitalization, Other)
  Sender: FDA-Public Use
  Company Number: IL-ABBVIE-17K-082-1867664-00

PATIENT
  Sex: Male

DRUGS (2)
  1. HUMIRA [Suspect]
     Active Substance: ADALIMUMAB
     Indication: PSORIASIS
     Dosage: USED BOTH HUMIRA SYRINGE AND HUMIRA PEN ALTERNATELY
     Route: 058
     Dates: start: 20090201, end: 2014
  2. HUMIRA [Suspect]
     Active Substance: ADALIMUMAB
     Dosage: USED BOTH HUMIRA SYRINGE AND HUMIRA PEN ALTERNATELY
     Route: 058
     Dates: start: 2014

REACTIONS (4)
  - Limb mass [Recovered/Resolved]
  - Psoriasis [Not Recovered/Not Resolved]
  - Epicondylitis [Recovered/Resolved]
  - Postoperative wound complication [Unknown]

NARRATIVE: CASE EVENT DATE: 2014
